FAERS Safety Report 20372839 (Version 1)
Quarter: 2022Q1

REPORT INFORMATION
  Report Type: Report from Study
  Country: US (occurrence: US)
  Receive Date: 20220125
  Receipt Date: 20220125
  Transmission Date: 20220424
  Serious: Yes (Hospitalization, Other)
  Sender: FDA-Public Use
  Company Number: US-TAKEDA-2022TUS003476

PATIENT
  Age: 69 Year
  Sex: Male

DRUGS (8)
  1. TEDUGLUTIDE [Suspect]
     Active Substance: TEDUGLUTIDE
     Indication: Short-bowel syndrome
     Dosage: 3.5 MILLIGRAM, QD
     Route: 065
     Dates: start: 20200801, end: 202110
  2. TEDUGLUTIDE [Suspect]
     Active Substance: TEDUGLUTIDE
     Indication: Short-bowel syndrome
     Dosage: 3.5 MILLIGRAM, QD
     Route: 065
     Dates: start: 20200801, end: 202110
  3. TEDUGLUTIDE [Suspect]
     Active Substance: TEDUGLUTIDE
     Indication: Short-bowel syndrome
     Dosage: 3.5 MILLIGRAM, QD
     Route: 065
     Dates: start: 20200801, end: 202110
  4. TEDUGLUTIDE [Suspect]
     Active Substance: TEDUGLUTIDE
     Indication: Short-bowel syndrome
     Dosage: 3.5 MILLIGRAM, QD
     Route: 065
     Dates: start: 20200801, end: 202110
  5. PROMETHAZINE [Concomitant]
     Active Substance: PROMETHAZINE HYDROCHLORIDE
     Indication: Nausea
     Dosage: 25 MILLIGRAM, PRN
     Route: 048
     Dates: start: 20210615
  6. DEXTROAMPHETAMINE [Concomitant]
     Active Substance: DEXTROAMPHETAMINE
     Indication: Anxiety
     Dosage: 20 MILLIGRAM, PRN
     Route: 048
     Dates: start: 20210412
  7. CILOSTAZOL [Concomitant]
     Active Substance: CILOSTAZOL
     Dosage: 75 MILLIGRAM, QD
     Route: 048
     Dates: start: 20210615
  8. CILOSTAZOL [Concomitant]
     Active Substance: CILOSTAZOL
     Dosage: 50 MILLIGRAM, QD
     Route: 048
     Dates: start: 20210412

REACTIONS (5)
  - Sepsis [Recovered/Resolved]
  - Device related infection [Recovered/Resolved]
  - Acute kidney injury [Recovered/Resolved]
  - Rash [Not Recovered/Not Resolved]
  - Leukocytosis [Recovered/Resolved]

NARRATIVE: CASE EVENT DATE: 20210205
